FAERS Safety Report 4318538-4 (Version None)
Quarter: 2004Q1

REPORT INFORMATION
  Report Type: 
  Country: None (occurrence: None)
  Receive Date: 20040318
  Receipt Date: 20040309
  Transmission Date: 20041129
  Serious: Yes (Death)
  Sender: FDA-Public Use
  Company Number: PHBS2004NO03186

PATIENT
  Age: 68 Year
  Sex: Male

DRUGS (4)
  1. VOLTAREN [Suspect]
     Route: 048
  2. WARFARIN SODIUM [Suspect]
     Indication: ATRIAL FIBRILLATION
     Route: 048
     Dates: start: 19950101
  3. NOZINAN [Concomitant]
  4. SELO-ZOK [Concomitant]
     Route: 048

REACTIONS (9)
  - ACUTE MYOCARDIAL INFARCTION [None]
  - ANAEMIA [None]
  - ASPARTATE AMINOTRANSFERASE INCREASED [None]
  - BLOOD CREATINE PHOSPHOKINASE MB [None]
  - CARDIAC FAILURE ACUTE [None]
  - DRUG INTERACTION [None]
  - HAEMATOCRIT DECREASED [None]
  - HAEMOGLOBIN DECREASED [None]
  - TROPONIN T INCREASED [None]
